FAERS Safety Report 9678191 (Version 2)
Quarter: 2013Q4

REPORT INFORMATION
  Report Type: Spontaneous
  Country: BR (occurrence: BR)
  Receive Date: 20131108
  Receipt Date: 20131126
  Transmission Date: 20140711
  Serious: Yes (Other)
  Sender: FDA-Public Use
  Company Number: BR-JNJFOC-20131101588

PATIENT
  Sex: Female

DRUGS (5)
  1. TRAMAL [Suspect]
     Indication: PAIN
     Route: 065
  2. TRAMAL [Suspect]
     Indication: SPINAL PAIN
     Route: 065
  3. MABTHERA [Suspect]
     Indication: RHEUMATOID ARTHRITIS
     Dosage: EVERY 6 MONTHS
     Route: 065
     Dates: start: 2009
  4. VITAMIN A [Concomitant]
     Indication: PRODUCT USED FOR UNKNOWN INDICATION
     Route: 065
  5. COLECALCIFEROL [Concomitant]
     Indication: PRODUCT USED FOR UNKNOWN INDICATION
     Route: 065

REACTIONS (23)
  - Abasia [Unknown]
  - Asthenia [Unknown]
  - Drug ineffective [Unknown]
  - Encephalopathy [Unknown]
  - Pneumonia [Recovered/Resolved]
  - Asthma [Recovered/Resolved]
  - Immunodeficiency [Not Recovered/Not Resolved]
  - Spinal disorder [Unknown]
  - Influenza [Recovering/Resolving]
  - Rhinitis [Not Recovered/Not Resolved]
  - Bronchitis [Recovered/Resolved]
  - Blood pressure decreased [Not Recovered/Not Resolved]
  - Varicophlebitis [Recovering/Resolving]
  - Vascular pain [Unknown]
  - Gastritis [Unknown]
  - Abdominal pain upper [Unknown]
  - Eating disorder [Unknown]
  - Vitamin D decreased [Unknown]
  - Joint injury [Unknown]
  - Deformity [Unknown]
  - Pain [Not Recovered/Not Resolved]
  - Constipation [Unknown]
  - Hypertension [Unknown]
